FAERS Safety Report 20027578 (Version 1)
Quarter: 2021Q4

REPORT INFORMATION
  Report Type: Spontaneous
  Country: US (occurrence: US)
  Receive Date: 20211103
  Receipt Date: 20211103
  Transmission Date: 20220303
  Serious: No
  Sender: FDA-Public Use
  Company Number: MIQ-09102021-1006

PATIENT

DRUGS (2)
  1. BISOPROLOL FUMARATE AND HYDROCHLOROTHIAZIDE [Suspect]
     Active Substance: BISOPROLOL FUMARATE\HYDROCHLOROTHIAZIDE
     Indication: Hypertension
     Dosage: UNK
     Route: 065
     Dates: start: 20210503, end: 2021
  2. BISOPROLOL FUMARATE AND HYDROCHLOROTHIAZIDE [Suspect]
     Active Substance: BISOPROLOL FUMARATE\HYDROCHLOROTHIAZIDE
     Dosage: 1 TABLET, QD
     Route: 048
     Dates: start: 20210731

REACTIONS (3)
  - Pruritus [Recovered/Resolved]
  - Product size issue [Unknown]
  - Product colour issue [Unknown]

NARRATIVE: CASE EVENT DATE: 20210731
